FAERS Safety Report 5168025-9 (Version None)
Quarter: 2006Q4

REPORT INFORMATION
  Report Type: 
  Country: None (occurrence: None)
  Receive Date: 20061208
  Receipt Date: 20060308
  Transmission Date: 20070319
  Serious: Yes (Other)
  Sender: FDA-Public Use
  Company Number: US-GLAXOSMITHKLINE-A0596728A

PATIENT
  Age: 55 Year
  Sex: Male
  Weight: 100 kg

DRUGS (8)
  1. AVANDAMET [Suspect]
     Route: 048
     Dates: start: 20041201, end: 20060301
  2. AVANDIA [Suspect]
     Dosage: 4MG TWICE PER DAY
     Route: 048
     Dates: start: 20041115, end: 20060101
  3. ALTACE [Concomitant]
  4. CELEBREX [Concomitant]
  5. VITAMINS [Concomitant]
  6. ACTOS [Concomitant]
  7. HYDROCHLOROTHIAZIDE [Concomitant]
     Dates: start: 20041115
  8. METFORMIN [Concomitant]

REACTIONS (1)
  - MACULAR OEDEMA [None]
